FAERS Safety Report 8334427-2 (Version None)
Quarter: 2012Q2

REPORT INFORMATION
  Report Type: 
  Country: None (occurrence: None)
  Receive Date: 20120503
  Receipt Date: 20110919
  Transmission Date: 20120825
  Serious: No
  Sender: FDA-Public Use
  Company Number: US-BAUSCH-2011BL006275

PATIENT
  Age: 67 Year
  Sex: Female

DRUGS (1)
  1. LOTEMAX [Suspect]
     Route: 047
     Dates: start: 20110914, end: 20110919

REACTIONS (3)
  - VULVOVAGINAL MYCOTIC INFECTION [None]
  - RASH GENERALISED [None]
  - HYPERSENSITIVITY [None]
